FAERS Safety Report 10236435 (Version 1)
Quarter: 2014Q2

REPORT INFORMATION
  Report Type: Spontaneous
  Country: US (occurrence: US)
  Receive Date: 20140613
  Receipt Date: 20140613
  Transmission Date: 20141212
  Serious: Yes (Other)
  Sender: FDA-Public Use
  Company Number: US-INCYTE CORPORATION-2014IN001592

PATIENT
  Age: 63 Year
  Sex: Female

DRUGS (1)
  1. JAKAFI [Suspect]
     Indication: MYELOFIBROSIS
     Dosage: 1(5MG) TABLET IN THE MORNING AND 1 (10MG) TABLET AT BEDTIME.
     Route: 048
     Dates: start: 20131214, end: 201404

REACTIONS (1)
  - Surgery [Unknown]
